FAERS Safety Report 9939310 (Version 1)
Quarter: 2014Q1

REPORT INFORMATION
  Report Type: Report from Study
  Country: US (occurrence: US)
  Receive Date: 20140303
  Receipt Date: 20140303
  Transmission Date: 20141002
  Serious: Yes (Hospitalization)
  Sender: FDA-Public Use
  Company Number: US-ABBVIE-13P-163-1037322-00

PATIENT
  Age: 55 Year
  Sex: Female

DRUGS (6)
  1. HUMIRA [Suspect]
     Indication: CROHN^S DISEASE
     Dates: start: 2004
  2. EFFEXOR [Concomitant]
     Indication: PRODUCT USED FOR UNKNOWN INDICATION
  3. B12 [Concomitant]
     Indication: PRODUCT USED FOR UNKNOWN INDICATION
     Dates: start: 201212
  4. BENTYL [Concomitant]
     Indication: PRODUCT USED FOR UNKNOWN INDICATION
     Dates: start: 201212
  5. ENTOCORT [Concomitant]
     Indication: CROHN^S DISEASE
     Dates: start: 201212
  6. LIPITOR [Concomitant]
     Indication: BLOOD CHOLESTEROL
     Dates: start: 201212

REACTIONS (5)
  - Abdominal pain upper [Unknown]
  - Intestinal stenosis [Unknown]
  - Drug ineffective [Unknown]
  - Muscle spasms [Unknown]
  - Pain [Unknown]
